FAERS Safety Report 10908409 (Version 2)
Quarter: 2015Q2

REPORT INFORMATION
  Report Type: Report from Study
  Country: US (occurrence: US)
  Receive Date: 20150312
  Receipt Date: 20150601
  Transmission Date: 20150821
  Serious: Yes (Hospitalization, Other)
  Sender: FDA-Public Use
  Company Number: US-009507513-1310USA002912

PATIENT
  Age: 87 Year
  Sex: Male
  Weight: 73 kg

DRUGS (6)
  1. PEMBROLIZUMAB. [Suspect]
     Active Substance: PEMBROLIZUMAB
     Indication: MALIGNANT MELANOMA
     Dosage: UNK UNK, Q3W
     Route: 042
     Dates: start: 20130722, end: 20130812
  2. PREDNISONE. [Concomitant]
     Active Substance: PREDNISONE
     Indication: LARYNGEAL INFLAMMATION
     Dosage: 40 MG, QD
     Route: 048
     Dates: start: 20130905, end: 20130910
  3. SENOKOT [Concomitant]
     Active Substance: SENNOSIDES
     Indication: CONSTIPATION
     Dosage: TOTAL DAILY DOSE: 1 TABLET, AS NEEDED (PRN)
     Route: 048
     Dates: start: 20130808
  4. MEDROL [Concomitant]
     Active Substance: METHYLPREDNISOLONE
     Indication: LARYNGEAL PAIN
     Dosage: TOTAL DAILY DOSE: 5 TABLETS, FREQUENCY: OTHER
     Route: 048
     Dates: start: 20130905, end: 20130909
  5. PEMBROLIZUMAB. [Suspect]
     Active Substance: PEMBROLIZUMAB
     Dosage: UNK UNK, Q3W
     Route: 042
     Dates: start: 20130903, end: 20130903
  6. TYLENOL [Concomitant]
     Active Substance: ACETAMINOPHEN
     Indication: LARYNGEAL PAIN
     Dosage: 500 MG, QD, FORMULATION: PILL
     Route: 048
     Dates: start: 20130820

REACTIONS (2)
  - Dysphagia [Not Recovered/Not Resolved]
  - Laryngeal inflammation [Recovered/Resolved]

NARRATIVE: CASE EVENT DATE: 20130911
